FAERS Safety Report 23550943 (Version 2)
Quarter: 2024Q2

REPORT INFORMATION
  Report Type: Spontaneous
  Country: US (occurrence: US)
  Receive Date: 20240221
  Receipt Date: 20240523
  Transmission Date: 20240716
  Serious: Yes (Other)
  Sender: FDA-Public Use
  Company Number: US-BRISTOL-MYERS SQUIBB COMPANY-2024-027260

PATIENT
  Age: 13 Year
  Sex: Male

DRUGS (2)
  1. NIVOLUMAB [Suspect]
     Active Substance: NIVOLUMAB
     Indication: Brain neoplasm malignant
     Dates: end: 20240206
  2. IPILIMUMAB [Suspect]
     Active Substance: IPILIMUMAB
     Indication: Brain neoplasm malignant
     Dates: end: 20240206

REACTIONS (2)
  - Drug ineffective [Unknown]
  - Off label use [Unknown]
